FAERS Safety Report 7568312-0 (Version None)
Quarter: 2011Q2

REPORT INFORMATION
  Report Type: 
  Country: None (occurrence: None)
  Receive Date: 20110623
  Receipt Date: 20110614
  Transmission Date: 20111010
  Serious: Yes (Other)
  Sender: FDA-Public Use
  Company Number: US-B.I. PHARMACEUTICALS,INC./RIDGEFIELD-2011-BP-15309BP

PATIENT
  Sex: Female
  Weight: 2.34 kg

DRUGS (2)
  1. EPZICOM [Concomitant]
     Indication: DRUG EXPOSURE DURING PREGNANCY
     Route: 048
     Dates: start: 20070614
  2. VIRAMUNE [Suspect]
     Indication: DRUG EXPOSURE DURING PREGNANCY
     Route: 064
     Dates: start: 20070614

REACTIONS (4)
  - TRISOMY 21 [None]
  - VENTRICULAR SEPTAL DEFECT [None]
  - PREMATURE BABY [None]
  - SMALL FOR DATES BABY [None]
